FAERS Safety Report 10120927 (Version 2)
Quarter: 2014Q2

REPORT INFORMATION
  Report Type: Report from Study
  Country: US (occurrence: US)
  Receive Date: 20140425
  Receipt Date: 20140425
  Transmission Date: 20141212
  Serious: Yes (Hospitalization)
  Sender: FDA-Public Use
  Company Number: PHHO2010US03791

PATIENT
  Age: 78 Year
  Sex: Female
  Weight: 68 kg

DRUGS (20)
  1. RECLAST [Suspect]
     Indication: OSTEOPOROSIS
     Dosage: 5 MG, YEARLY
     Route: 042
     Dates: start: 20100215, end: 20100215
  2. CELECOXIB [Concomitant]
     Indication: RHEUMATOID ARTHRITIS
     Dosage: UNK
     Dates: start: 20090219, end: 20100223
  3. CELECOXIB [Concomitant]
     Dosage: UNK
     Dates: start: 20100225
  4. NAPROXEN [Concomitant]
     Indication: RHEUMATOID ARTHRITIS
     Dosage: UNK
     Dates: start: 20090219, end: 20100223
  5. NAPROXEN [Concomitant]
     Dosage: UNK
     Dates: start: 20100225
  6. IBUPROFEN [Concomitant]
     Indication: RHEUMATOID ARTHRITIS
     Dosage: UNK
     Dates: start: 20090219, end: 20100223
  7. IBUPROFEN [Concomitant]
     Dosage: UNK
     Dates: start: 20100225
  8. NEXIUM [Concomitant]
     Indication: PROPHYLAXIS
     Dosage: UNK
     Route: 048
     Dates: start: 20090220, end: 20100223
  9. NEXIUM [Concomitant]
     Dosage: UNK
     Dates: start: 20100225
  10. METHOTREXATE [Concomitant]
     Dosage: UNK
     Route: 048
     Dates: start: 20000821
  11. PREDNISONE [Concomitant]
     Dosage: UNK
     Route: 048
     Dates: start: 20000508
  12. FOLIC ACID [Concomitant]
     Dosage: UNK
     Route: 048
     Dates: start: 20000821
  13. SIMVASTATIN [Concomitant]
     Dosage: UNK
     Route: 048
     Dates: start: 19980318
  14. MULTIVITAMINS, PLAIN [Concomitant]
     Dosage: UNK
     Route: 048
     Dates: start: 20000821
  15. CALCIUM [Concomitant]
     Dosage: UNK
     Route: 048
     Dates: start: 20000821
  16. VITAMIN D [Concomitant]
     Dosage: UNK
     Route: 048
     Dates: start: 20000821
  17. DOXEPIN [Concomitant]
     Dosage: UNK
     Route: 048
     Dates: start: 20000821
  18. METAMUCIL [Concomitant]
     Dosage: UNK
     Route: 048
     Dates: start: 20070403
  19. ALTACE [Concomitant]
     Dosage: UNK
     Route: 048
     Dates: start: 19981209
  20. NORVASC [Concomitant]
     Dosage: UNK
     Route: 048
     Dates: start: 20090930

REACTIONS (5)
  - Hyponatraemia [Recovered/Resolved]
  - Hypokalaemia [Recovered/Resolved]
  - Nausea [Recovered/Resolved]
  - Abdominal pain upper [Recovered/Resolved]
  - Vomiting [Recovered/Resolved]
